FAERS Safety Report 7397198-2 (Version None)
Quarter: 2011Q2

REPORT INFORMATION
  Report Type: 
  Country: None (occurrence: None)
  Receive Date: 20110406
  Receipt Date: 20110329
  Transmission Date: 20111010
  Serious: Yes (Other)
  Sender: FDA-Public Use
  Company Number: US-BAYER-2011-027206

PATIENT
  Sex: Female

DRUGS (2)
  1. YASMIN [Suspect]
     Indication: PRODUCT USED FOR UNKNOWN INDICATION
     Dosage: UNK
     Route: 048
     Dates: start: 20050701
  2. YAZ [Suspect]
     Dosage: UNK
     Route: 048
     Dates: start: 20080701

REACTIONS (4)
  - PAIN [None]
  - GALLBLADDER INJURY [None]
  - FEAR [None]
  - INJURY [None]
